FAERS Safety Report 24156077 (Version 1)
Quarter: 2024Q3

REPORT INFORMATION
  Report Type: Spontaneous
  Country: US (occurrence: None)
  Receive Date: 20240730
  Receipt Date: 20240730
  Transmission Date: 20241017
  Serious: Yes (Death)
  Sender: Public
  Company Number: None

PATIENT
  Sex: Male

DRUGS (10)
  1. ADCIRCA [Suspect]
     Active Substance: TADALAFIL
     Indication: Pulmonary arterial hypertension
     Dosage: FREQ: TAKE 2 TABLETS BY MOUTH DAILY?
     Route: 048
     Dates: start: 20170221
  2. B-12 TR [Concomitant]
  3. FUROSEMIDE [Concomitant]
     Active Substance: FUROSEMIDE
  4. K-TAB [Concomitant]
     Active Substance: POTASSIUM CHLORIDE
  5. NADOLOL [Concomitant]
     Active Substance: NADOLOL
  6. OPSUMIT [Concomitant]
     Active Substance: MACITENTAN
  7. PRADAXA [Concomitant]
     Active Substance: DABIGATRAN ETEXILATE MESYLATE
  8. PREDNISONE [Concomitant]
     Active Substance: PREDNISONE
  9. PYRIDOSTIGM [Concomitant]
  10. SOLIRIS [Concomitant]
     Active Substance: ECULIZUMAB

REACTIONS (1)
  - Death [None]
